FAERS Safety Report 15313197 (Version 1)
Quarter: 2018Q4

REPORT INFORMATION
  Report Type: Spontaneous
  Country: CH (occurrence: CH)
  Receive Date: 20180823
  Receipt Date: 20180823
  Transmission Date: 20190204
  Serious: Yes (Other)
  Sender: FDA-Public Use
  Company Number: CH-SA-2018SA217935

PATIENT

DRUGS (8)
  1. METFIN [Suspect]
     Active Substance: METFORMIN HYDROCHLORIDE
     Route: 064
     Dates: end: 20180507
  2. MONURIL [Suspect]
     Active Substance: FOSFOMYCIN TROMETHAMINE
     Indication: URINARY TRACT INFECTION
     Dosage: 1 DOSE UNIQUE LE 25.04.2018 ; IN TOTAL
     Route: 064
     Dates: start: 20180425, end: 20180425
  3. PANADOL [Suspect]
     Active Substance: ACETAMINOPHEN
     Dosage: AS NECESSARY
     Route: 064
  4. VICTOZA [Suspect]
     Active Substance: LIRAGLUTIDE
     Indication: TYPE 2 DIABETES MELLITUS
     Route: 064
     Dates: end: 20180507
  5. VALVERDE BERUHIGUNG [Suspect]
     Active Substance: HERBALS\HOMEOPATHICS\PASSIFLORA INCARNATA FLOWER
     Dosage: AS NECESSARY
     Route: 064
  6. LANTUS [Suspect]
     Active Substance: INSULIN GLARGINE
     Route: 064
  7. SORTIS [Suspect]
     Active Substance: ATORVASTATIN
     Route: 064
     Dates: end: 20180502
  8. REDORMIN (HUMULUS LUPULUS HOPS\VALERIANA OFFICINALIS ROOT) [Suspect]
     Active Substance: HERBALS\HOPS\VALERIAN
     Dosage: AS NECESSARY
     Route: 064

REACTIONS (3)
  - Exposure during pregnancy [Unknown]
  - Abortion spontaneous [Unknown]
  - Foetal chromosome abnormality [Recovered/Resolved]

NARRATIVE: CASE EVENT DATE: 20180331
